FAERS Safety Report 7672589-0 (Version None)
Quarter: 2011Q3

REPORT INFORMATION
  Report Type: 
  Country: None (occurrence: None)
  Receive Date: 20110809
  Receipt Date: 20110804
  Transmission Date: 20111222
  Serious: Yes (Other)
  Sender: FDA-Public Use
  Company Number: DK-PFIZER INC-2011164305

PATIENT
  Age: 56 Year
  Sex: Male

DRUGS (8)
  1. OXIS TURBUHALER ^ASTRA ZENECA^ [Concomitant]
  2. FLUOXETINE HCL [Concomitant]
     Indication: DEPRESSION
     Dosage: UNK
     Dates: start: 20100531
  3. VITAMIN B [Concomitant]
  4. TEGRETOL [Concomitant]
     Indication: BIPOLAR DISORDER
     Dosage: UNK
     Dates: start: 20101001
  5. VENTOLIN [Concomitant]
  6. LYRICA [Suspect]
     Indication: ANXIETY
     Dosage: 300 MG, 3X/DAY
     Dates: start: 20100728
  7. ZYPREXA [Concomitant]
     Indication: BIPOLAR DISORDER
     Dosage: UNK
     Dates: start: 20101206
  8. CLONAZEPAM [Concomitant]
     Indication: BIPOLAR DISORDER
     Dosage: UNK
     Dates: start: 20110414

REACTIONS (4)
  - C-REACTIVE PROTEIN INCREASED [None]
  - HYPOKALAEMIA [None]
  - MUSCLE SPASMS [None]
  - VITAMIN B12 DECREASED [None]
